FAERS Safety Report 21224533 (Version 6)
Quarter: 2022Q4

REPORT INFORMATION
  Report Type: Spontaneous
  Country: AT (occurrence: AT)
  Receive Date: 20220817
  Receipt Date: 20221213
  Transmission Date: 20230113
  Serious: Yes (Other)
  Sender: FDA-Public Use
  Company Number: AT-ROCHE-3137316

PATIENT
  Age: 41 Year
  Sex: Female

DRUGS (58)
  1. TUKYSA [Suspect]
     Active Substance: TUCATINIB
     Indication: Breast cancer metastatic
     Dosage: 300 MG, BID
     Route: 048
     Dates: start: 20210430
  2. LOPERAMIDE [Suspect]
     Active Substance: LOPERAMIDE
     Indication: Diarrhoea
     Dosage: UNK
     Dates: start: 20171127
  3. TRASTUZUMAB [Suspect]
     Active Substance: TRASTUZUMAB
     Indication: Breast cancer metastatic
     Dosage: IV DRIP, EVERY 3 WEEKS, MOST RECENT DOSE PRIOR TO THE EVENT: 6/SEP/2019
     Route: 041
     Dates: start: 20161020, end: 20161020
  4. TRASTUZUMAB [Suspect]
     Active Substance: TRASTUZUMAB
     Dosage: IV DRIP, EVERY 3 WEEKS
     Route: 041
     Dates: start: 20170112, end: 20170112
  5. TRASTUZUMAB [Suspect]
     Active Substance: TRASTUZUMAB
     Dosage: IV DRIP, EVERY 3 WEEKS
     Route: 041
     Dates: start: 20190906
  6. TRASTUZUMAB [Suspect]
     Active Substance: TRASTUZUMAB
     Dosage: IV DRIP, EVERY 3 WEEKS
     Route: 041
     Dates: start: 20170227, end: 20180108
  7. CAPECITABINE [Suspect]
     Active Substance: CAPECITABINE
     Indication: Breast cancer metastatic
     Dosage: DAY 1 - DAY 14, BID
     Route: 048
     Dates: start: 20210904, end: 20220114
  8. CAPECITABINE [Suspect]
     Active Substance: CAPECITABINE
     Dosage: DAY 1 - DAY 14, BID
     Route: 042
     Dates: start: 20210430, end: 20210903
  9. CAPECITABINE [Suspect]
     Active Substance: CAPECITABINE
     Dosage: DAY 1 - DAY 14, BID
     Route: 048
     Dates: start: 20220204
  10. LOPERAMIDE [Suspect]
     Active Substance: LOPERAMIDE
     Dosage: UNK
  11. EPIRUBICIN [Suspect]
     Active Substance: EPIRUBICIN
     Indication: Breast cancer metastatic
     Dosage: ONE CYCLE PER REGIMEN
     Route: 042
     Dates: start: 20161005, end: 20161005
  12. PERTUZUMAB [Suspect]
     Active Substance: PERTUZUMAB
     Indication: Breast cancer metastatic
     Dosage: ONCE IN EVERY 3 WEEKS
     Route: 042
     Dates: start: 20190906, end: 20210409
  13. PERTUZUMAB [Suspect]
     Active Substance: PERTUZUMAB
     Dosage: ONCE IN EVERY 3 WEEKS
     Route: 042
     Dates: start: 20170112, end: 20170112
  14. PERTUZUMAB [Suspect]
     Active Substance: PERTUZUMAB
     Dosage: ONCE IN EVERY 3 WEEKS
     Route: 042
     Dates: start: 20161020, end: 20161020
  15. DOCETAXEL [Suspect]
     Active Substance: DOCETAXEL
     Indication: Breast cancer metastatic
     Dosage: ONCE IN EVERY 3 WEEKS
     Route: 042
     Dates: start: 20161020, end: 20161020
  16. DOCETAXEL [Suspect]
     Active Substance: DOCETAXEL
     Dosage: ONCE IN EVERY 3 WEEKS
     Route: 042
     Dates: start: 20161111, end: 20161111
  17. DOCETAXEL [Suspect]
     Active Substance: DOCETAXEL
     Dosage: ONCE IN EVERY 3 WEEKS
     Route: 042
     Dates: start: 20161201, end: 20161222
  18. DOCETAXEL [Suspect]
     Active Substance: DOCETAXEL
     Dosage: ONCE IN EVERY 3 WEEKS
     Route: 042
     Dates: start: 20170112, end: 20170202
  19. CYCLOPHOSPHAMIDE [Suspect]
     Active Substance: CYCLOPHOSPHAMIDE
     Indication: Breast cancer metastatic
     Dosage: OTHER MOST RECENT DOSE PRIOR TO AE 05/OCT/2016
     Route: 042
     Dates: start: 20161005
  20. ADO-TRASTUZUMAB EMTANSINE [Suspect]
     Active Substance: ADO-TRASTUZUMAB EMTANSINE
     Indication: Breast cancer metastatic
     Dosage: EVERY 3 WEEKS
     Route: 042
     Dates: start: 20180205, end: 20190816
  21. ALPRAZOLAM [Concomitant]
     Active Substance: ALPRAZOLAM
     Dosage: UNK
  22. METOCLOPRAMIDE [Concomitant]
     Active Substance: METOCLOPRAMIDE
     Dosage: UNK
  23. XGEVA [Concomitant]
     Active Substance: DENOSUMAB
     Dosage: ONGOING = CHECKED
     Dates: start: 20161201
  24. SERTRALINE HYDROCHLORIDE [Concomitant]
     Active Substance: SERTRALINE HYDROCHLORIDE
     Dosage: UNK
  25. SERTRALINE HYDROCHLORIDE [Concomitant]
     Active Substance: SERTRALINE HYDROCHLORIDE
  26. ARANESP [Concomitant]
     Active Substance: DARBEPOETIN ALFA
     Dosage: UNK
  27. HALCION [Concomitant]
     Active Substance: TRIAZOLAM
     Dosage: UNK
  28. SERTRALINE [Concomitant]
     Active Substance: SERTRALINE HYDROCHLORIDE
     Dosage: UNK
     Dates: start: 20171016
  29. VITAMINS WITH MINERALS [Concomitant]
     Active Substance: MINERALS\VITAMINS
     Dosage: ONGOING = CHECKED
     Dates: start: 20161112
  30. BISOPROLOL FUMARATE [Concomitant]
     Active Substance: BISOPROLOL FUMARATE
     Dosage: ONGOING = CHECKED
     Dates: start: 20170227
  31. CEOLAT [Concomitant]
     Dosage: UNK
  32. LEVETIRACETAM [Concomitant]
     Active Substance: LEVETIRACETAM
     Indication: Epilepsy
     Dosage: ONGOING = CHECKED
     Dates: start: 20220201
  33. XARELTO [Concomitant]
     Active Substance: RIVAROXABAN
     Dosage: UNK
  34. ONDANSETRON HYDROCHLORIDE [Concomitant]
     Active Substance: ONDANSETRON HYDROCHLORIDE
     Indication: Nausea
     Dosage: ONGOING = CHECKED
     Dates: start: 20181105
  35. SUCRALAN [Concomitant]
     Dosage: ONGOING = NOT CHECKED
     Dates: start: 20161215
  36. RAMIPRIL [Concomitant]
     Active Substance: RAMIPRIL
     Dosage: ONGOING = CHECKED
     Dates: start: 20170227
  37. METOCLOPRAMIDE HYDROCHLORIDE [Concomitant]
     Active Substance: METOCLOPRAMIDE HYDROCHLORIDE
     Dosage: UNK
  38. FILGRASTIM [Concomitant]
     Active Substance: FILGRASTIM
     Dosage: UNK
  39. PANTOPRAZOLE SODIUM [Concomitant]
     Active Substance: PANTOPRAZOLE SODIUM
     Dosage: UNK
  40. HYDROMORPHONE HYDROCHLORIDE [Concomitant]
     Active Substance: HYDROMORPHONE HYDROCHLORIDE
     Dosage: ONGOING = CHECKED
     Dates: start: 20210410
  41. ZOFRAN [Concomitant]
     Active Substance: ONDANSETRON HYDROCHLORIDE
     Dosage: UNK
  42. KCL [Concomitant]
     Active Substance: POTASSIUM CHLORIDE
     Dosage: UNK
  43. FENTANYL [Concomitant]
     Active Substance: FENTANYL
     Dosage: UNK
  44. LASIX [Concomitant]
     Active Substance: FUROSEMIDE
     Dosage: UNK
  45. DEXAMETHASONE [Concomitant]
     Active Substance: DEXAMETHASONE
     Dosage: UNK
  46. OPTIFIBRE [Concomitant]
     Dosage: UNK
  47. PERFALGAN [Concomitant]
     Active Substance: ACETAMINOPHEN
     Dosage: UNK
  48. DEXIBUPROFEN [Concomitant]
     Active Substance: DEXIBUPROFEN
     Dosage: ONGOING = CHECKED
     Dates: start: 20210312
  49. TAZOBACTAM [Concomitant]
     Active Substance: TAZOBACTAM
     Dosage: UNK
  50. CLOBAZAM [Concomitant]
     Active Substance: CLOBAZAM
     Indication: Epilepsy
     Dosage: ONGOING = CHECKED
     Dates: start: 20220201
  51. IMODIUM [Concomitant]
     Active Substance: LOPERAMIDE HYDROCHLORIDE
  52. MOVICOL [Concomitant]
     Active Substance: POLYETHYLENE GLYCOL 3350\POTASSIUM CHLORIDE\SODIUM BICARBONATE\SODIUM CHLORIDE
     Dosage: UNK
  53. HALDOL [Concomitant]
     Active Substance: HALOPERIDOL
     Dosage: UNK
  54. CLAVAMOX [AMOXICILLIN SODIUM;CLAVULANATE POTASSIUM] [Concomitant]
     Dosage: UNK
  55. DEXAMETHASONE [Concomitant]
     Active Substance: DEXAMETHASONE
     Dosage: UNK
  56. DEXAMETHASONE [Concomitant]
     Active Substance: DEXAMETHASONE
  57. GLANDOMED [Concomitant]
     Dosage: UNK
  58. LIPEGFILGRASTIM [Concomitant]
     Active Substance: LIPEGFILGRASTIM
     Dosage: UNK

REACTIONS (1)
  - Thrombocytopenia [Recovering/Resolving]

NARRATIVE: CASE EVENT DATE: 20220114
